FAERS Safety Report 11972571 (Version 1)
Quarter: 2016Q1

REPORT INFORMATION
  Report Type: Spontaneous
  Country: US (occurrence: US)
  Receive Date: 20160128
  Receipt Date: 20160128
  Transmission Date: 20160526
  Serious: No
  Sender: FDA-Public Use
  Company Number: US-PFIZER INC-2016000617

PATIENT
  Sex: Female

DRUGS (3)
  1. PERCOCET [Suspect]
     Active Substance: ACETAMINOPHEN\OXYCODONE HYDROCHLORIDE
     Indication: UPPER LIMB FRACTURE
  2. ADVIL [Suspect]
     Active Substance: IBUPROFEN
     Indication: UPPER LIMB FRACTURE
     Dosage: 3 PILLS, EVERY 4 HRS
  3. ADVIL [Suspect]
     Active Substance: IBUPROFEN
     Dosage: 2 PILLS, EVERY 4 HRS

REACTIONS (3)
  - Peripheral swelling [Unknown]
  - Joint swelling [Unknown]
  - Off label use [Unknown]
